FAERS Safety Report 8576845-3 (Version None)
Quarter: 2012Q3

REPORT INFORMATION
  Report Type: 
  Country: None (occurrence: None)
  Receive Date: 20120725
  Receipt Date: 20120604
  Transmission Date: 20120928
  Serious: Yes (Hospitalization, Other)
  Sender: FDA-Public Use
  Company Number: US-2012-10924

PATIENT
  Age: 30 Year
  Sex: Male

DRUGS (1)
  1. CILOSTAZOL [Suspect]
     Indication: VENTRICULAR FIBRILLATION
     Dosage: 200 MG, DAILY DOSE, ORAL
     Route: 048
     Dates: start: 20031001

REACTIONS (4)
  - VENTRICULAR EXTRASYSTOLES [None]
  - ATRIAL FIBRILLATION [None]
  - DRUG INEFFECTIVE [None]
  - VENTRICULAR FIBRILLATION [None]
